FAERS Safety Report 9206632 (Version 1)
Quarter: 2013Q2

REPORT INFORMATION
  Report Type: Spontaneous
  Country: ES (occurrence: None)
  Receive Date: 20130401
  Receipt Date: 20130401
  Transmission Date: 20140414
  Serious: Yes (Other)
  Sender: FDA-Public Use
  Company Number: 1647177

PATIENT
  Age: 76 Year
  Sex: Female

DRUGS (9)
  1. (VANCOMYCIN HYDROCHLORIDE) [Suspect]
  2. ACYCLOVIR [Suspect]
  3. (AMIKACIN) [Suspect]
  4. CYCLOPHOSPHAMIDE [Suspect]
  5. PANTOPRAZOLE [Suspect]
     Indication: PRODUCT USED FOR UNKNOWN INDICATION
  6. (DOXORUBICIN) [Concomitant]
  7. (RITUXIMAB) [Concomitant]
  8. (VINCRISTINE) [Concomitant]
  9. PREDNISONE [Concomitant]

REACTIONS (2)
  - Hypomagnesaemia [None]
  - Pain [None]
